FAERS Safety Report 9800114 (Version 2)
Quarter: 2014Q1

REPORT INFORMATION
  Report Type: Spontaneous
  Country: US (occurrence: US)
  Receive Date: 20140106
  Receipt Date: 20140106
  Transmission Date: 20141002
  Serious: No
  Sender: FDA-Public Use
  Company Number: US-GILEAD-2010-0032475

PATIENT
  Age: 55 Year
  Sex: Male
  Weight: 74.84 kg

DRUGS (2)
  1. LETAIRIS [Suspect]
     Indication: PULMONARY ARTERIAL HYPERTENSION
     Route: 048
     Dates: start: 20100623
  2. PREDNISONE [Concomitant]

REACTIONS (1)
  - Hypertension [Unknown]
